FAERS Safety Report 4565262-9 (Version None)
Quarter: 2005Q1

REPORT INFORMATION
  Report Type: 
  Country: None (occurrence: None)
  Receive Date: 20050131
  Receipt Date: 20041124
  Transmission Date: 20050727
  Serious: Yes (Disabling)
  Sender: FDA-Public Use
  Company Number: US-MERCK-0411USA04006

PATIENT
  Age: 66 Year
  Sex: Male
  Weight: 89 kg

DRUGS (4)
  1. ZOCOR [Suspect]
     Indication: BLOOD CHOLESTEROL INCREASED
     Route: 048
     Dates: start: 20030101, end: 20040901
  2. ASPIRIN [Concomitant]
     Route: 065
  3. TOPROL-XL [Concomitant]
     Route: 065
  4. PROSCAR [Concomitant]
     Route: 048

REACTIONS (3)
  - ARTHRALGIA [None]
  - MYALGIA [None]
  - PAIN IN EXTREMITY [None]
